FAERS Safety Report 7598576-9 (Version None)
Quarter: 2011Q3

REPORT INFORMATION
  Report Type: 
  Country: None (occurrence: None)
  Receive Date: 20110708
  Receipt Date: 20110629
  Transmission Date: 20111222
  Serious: Yes (Hospitalization, Other)
  Sender: FDA-Public Use
  Company Number: US-ASTRAZENECA-2011SE33378

PATIENT
  Age: 66 Year
  Sex: Male

DRUGS (1)
  1. NEXIUM [Suspect]
     Route: 048

REACTIONS (5)
  - ASTHENIA [None]
  - DIALYSIS [None]
  - BLOOD MAGNESIUM DECREASED [None]
  - PNEUMONIA [None]
  - BLOOD POTASSIUM DECREASED [None]
